FAERS Safety Report 6366224-1 (Version None)
Quarter: 2009Q3

REPORT INFORMATION
  Report Type: 
  Country: None (occurrence: None)
  Receive Date: 20090921
  Receipt Date: 20090908
  Transmission Date: 20100115
  Serious: Yes (Other)
  Sender: FDA-Public Use
  Company Number: TR-RANBAXY-2009RR-28036

PATIENT
  Age: 37 Year
  Sex: Female

DRUGS (2)
  1. FLUOXETINE [Suspect]
     Indication: MAJOR DEPRESSION
     Dosage: 40 MG, QD
  2. FLUOXETINE [Concomitant]
     Dosage: 10 MG, QD

REACTIONS (2)
  - GALACTORRHOEA [None]
  - PITUITARY TUMOUR BENIGN [None]
